FAERS Safety Report 9291557 (Version 1)
Quarter: 2013Q2

REPORT INFORMATION
  Report Type: Spontaneous
  Country: US (occurrence: US)
  Receive Date: 20130515
  Receipt Date: 20130515
  Transmission Date: 20140414
  Serious: Yes (Death, Hospitalization)
  Sender: FDA-Public Use
  Company Number: US-GLAXOSMITHKLINE-B0724373A

PATIENT
  Age: 74 Year
  Sex: Female
  Weight: 56.4 kg

DRUGS (1)
  1. AVANDIA [Suspect]
     Indication: DIABETES MELLITUS
     Dosage: 4MG TWICE PER DAY
     Route: 048
     Dates: start: 20000726, end: 200312

REACTIONS (2)
  - Cardio-respiratory arrest [Fatal]
  - Atrial fibrillation [Unknown]
